FAERS Safety Report 13747587 (Version 12)
Quarter: 2019Q3

REPORT INFORMATION
  Report Type: Report from Study
  Country: None (occurrence: FR)
  Receive Date: 20170712
  Receipt Date: 20190813
  Transmission Date: 20191004
  Serious: Yes (Life-Threatening, Hospitalization, Congenital Anomaly, Other)
  Sender: FDA-Public Use
  Company Number: FR-ABBVIE-17P-056-2032265-00

PATIENT
  Sex: Female

DRUGS (11)
  1. PREZISTA [Suspect]
     Active Substance: DARUNAVIR ETHANOLATE
     Indication: MATERNAL EXPOSURE TIMING UNSPECIFIED
     Route: 064
  2. NEVIRAPINE. [Suspect]
     Active Substance: NEVIRAPINE
     Indication: MATERNAL EXPOSURE TIMING UNSPECIFIED
     Route: 064
  3. PREZISTA [Suspect]
     Active Substance: DARUNAVIR ETHANOLATE
     Route: 064
  4. REYATAZ [Suspect]
     Active Substance: ATAZANAVIR SULFATE
     Indication: MATERNAL EXPOSURE TIMING UNSPECIFIED
     Route: 064
  5. EPZICOM [Suspect]
     Active Substance: ABACAVIR SULFATE\LAMIVUDINE
     Indication: MATERNAL EXPOSURE TIMING UNSPECIFIED
     Route: 064
  6. NORVIR [Suspect]
     Active Substance: RITONAVIR
     Indication: MATERNAL EXPOSURE TIMING UNSPECIFIED
     Route: 064
  7. PREZISTA [Suspect]
     Active Substance: DARUNAVIR ETHANOLATE
     Route: 064
  8. KIVEXA [Suspect]
     Active Substance: ABACAVIR SULFATE\LAMIVUDINE
     Indication: MATERNAL EXPOSURE TIMING UNSPECIFIED
     Route: 064
  9. VIRAMUNE [Suspect]
     Active Substance: NEVIRAPINE
     Indication: MATERNAL EXPOSURE TIMING UNSPECIFIED
     Route: 064
  10. PREZISTA [Suspect]
     Active Substance: DARUNAVIR ETHANOLATE
     Route: 064
  11. PREZISTA [Suspect]
     Active Substance: DARUNAVIR ETHANOLATE
     Route: 064

REACTIONS (12)
  - Left ventricular dilatation [Unknown]
  - Acoustic stimulation tests abnormal [Unknown]
  - Foetal growth restriction [Recovering/Resolving]
  - Foetal exposure during pregnancy [Unknown]
  - Supernumerary nipple [Recovered/Resolved]
  - Congenital naevus [Not Recovered/Not Resolved]
  - Low set ears [Unknown]
  - Anomaly of external ear congenital [Unknown]
  - Eosinophilia [Unknown]
  - Dermatitis exfoliative generalised [Not Recovered/Not Resolved]
  - Supernumerary nipple [Unknown]
  - Breast disorder [Unknown]

NARRATIVE: CASE EVENT DATE: 20170129
